FAERS Safety Report 24966247 (Version 1)
Quarter: 2025Q1

REPORT INFORMATION
  Report Type: Spontaneous
  Country: TR (occurrence: TR)
  Receive Date: 20250213
  Receipt Date: 20250213
  Transmission Date: 20250409
  Serious: Yes (Other)
  Sender: ALEXION PHARMACEUTICALS
  Company Number: TR-ASTRAZENECA-202502TUR004136TR

PATIENT
  Age: 32 Year

DRUGS (1)
  1. FASENRA [Suspect]
     Active Substance: BENRALIZUMAB

REACTIONS (6)
  - Hypertension [Recovered/Resolved]
  - Sinus tachycardia [Unknown]
  - Vision blurred [Unknown]
  - Hypoaesthesia [Unknown]
  - Tremor [Unknown]
  - Blood pressure fluctuation [Unknown]
